FAERS Safety Report 11253217 (Version 1)
Quarter: 2015Q3

REPORT INFORMATION
  Report Type: Spontaneous
  Country: FR (occurrence: None)
  Receive Date: 20150707
  Receipt Date: 20150707
  Transmission Date: 20151125
  Serious: Yes (Hospitalization)
  Sender: FDA-Public Use
  Company Number: FR-H14001-15-00929

PATIENT
  Age: 50 Year
  Sex: Female

DRUGS (2)
  1. DAUNORUBICIN HYDROCHLORIDE (DAUNORUBICIN) (UNKNOWN) (DAUNORUBICIN) [Suspect]
     Active Substance: DAUNORUBICIN HYDROCHLORIDE
     Indication: ACUTE MYELOID LEUKAEMIA
     Dosage: 60 MG/M2  (60 MG/M2, 1 IN 1 D), INTRAVENOUS (NOT OTHERWISE SPECIFIED)
     Route: 042
     Dates: start: 20100922, end: 20100923
  2. CYTARABINE (CYTARABINE) (UNKNOWN) (CYTARABINE) [Suspect]
     Active Substance: CYTARABINE
     Indication: ACUTE MYELOID LEUKAEMIA
     Dosage: 100 MG/M2  (50 MG/M2, 2 IN 1 D), SUBCUTANEOUS
     Route: 058
     Dates: start: 20100922, end: 20100928

REACTIONS (3)
  - Procedural complication [None]
  - Escherichia infection [None]
  - Hyperthermia [None]

NARRATIVE: CASE EVENT DATE: 20101001
